FAERS Safety Report 5475331-7 (Version None)
Quarter: 2007Q4

REPORT INFORMATION
  Report Type: 
  Country: None (occurrence: None)
  Receive Date: 20071001
  Receipt Date: 20070917
  Transmission Date: 20080405
  Serious: Yes (Hospitalization)
  Sender: FDA-Public Use
  Company Number: 2007331816

PATIENT
  Age: 56 Year
  Sex: Female

DRUGS (19)
  1. BENADRYL [Suspect]
  2. CHANTIX [Suspect]
  3. LORTAB [Suspect]
  4. PLAVIX [Concomitant]
  5. ASPIRIN [Concomitant]
  6. DRUG, UNSPECIFIED (DRUG, UNSPECIFIED) [Concomitant]
  7. TOPROL-XL [Concomitant]
  8. PRAVASTATIN [Concomitant]
  9. ASPIRIN [Concomitant]
  10. FOLTX (CYANOCOBALAMIN, FOLIC ACID, PYRIDOXINE) [Concomitant]
  11. POTASSIUM CHLORIDE [Concomitant]
  12. CALCIUM WITH VITAMIN D (CALCIUM PHOSPHATE, CALCIUM SODIUM LACTATE, ERG [Concomitant]
  13. NITROGLYCERIN [Concomitant]
  14. ISOSORBIDE MONONITRATE [Concomitant]
  15. PAROXETINE HCL [Concomitant]
  16. PLAVIX [Concomitant]
  17. NEXIUM [Concomitant]
  18. FLEXERIL [Concomitant]
  19. LISINOPRIL [Concomitant]

REACTIONS (2)
  - DRUG INTERACTION [None]
  - MENTAL STATUS CHANGES [None]
